FAERS Safety Report 6476877-5 (Version None)
Quarter: 2009Q4

REPORT INFORMATION
  Report Type: 
  Country: None (occurrence: None)
  Receive Date: 20091203
  Receipt Date: 20091203
  Transmission Date: 20100525
  Serious: Yes (Other)
  Sender: FDA-Public Use
  Company Number: None

PATIENT
  Age: 33 Year
  Sex: Female
  Weight: 99.3377 kg

DRUGS (1)
  1. CYMBALTA [Suspect]
     Indication: PAIN
     Dosage: 20MG 1X DAILY PO
     Route: 048
     Dates: start: 20050608, end: 20091130

REACTIONS (6)
  - CHILLS [None]
  - DRUG WITHDRAWAL SYNDROME [None]
  - IMPAIRED WORK ABILITY [None]
  - PARAESTHESIA [None]
  - RETINAL DETACHMENT [None]
  - VERTIGO [None]
